FAERS Safety Report 5585162-5 (Version None)
Quarter: 2008Q1

REPORT INFORMATION
  Report Type: 
  Country: None (occurrence: None)
  Receive Date: 20080109
  Receipt Date: 20080104
  Transmission Date: 20080703
  Serious: Yes (Hospitalization)
  Sender: FDA-Public Use
  Company Number: DE-WYE-G00848708

PATIENT
  Sex: Female
  Weight: 90 kg

DRUGS (4)
  1. TREVILOR [Suspect]
     Dosage: 7 TABLETS (OVERDOSE AMOUNT UNKNOWN)
     Route: 048
     Dates: start: 20080104, end: 20080104
  2. TOPAMAX [Suspect]
     Dosage: 7 TABLETS (OVERDOSE AMOUNT 350 MG)
     Route: 048
     Dates: start: 20080104, end: 20080104
  3. OXCARBAZEPINE [Suspect]
     Dosage: UNKNOWN NUMBER OF TABLETS (OVERDOSE AMOUNT 6300 MG)
     Route: 048
     Dates: start: 20080104, end: 20080104
  4. MIRTAZAPINE [Suspect]
     Dosage: 7 TABLETS (OVERDOSE AMOUNT UNKNOWN)
     Route: 048
     Dates: start: 20080104, end: 20080104

REACTIONS (2)
  - INTENTIONAL OVERDOSE [None]
  - STATUS EPILEPTICUS [None]
